FAERS Safety Report 11700154 (Version 2)
Quarter: 2015Q4

REPORT INFORMATION
  Report Type: Spontaneous
  Country: FI (occurrence: FI)
  Receive Date: 20151105
  Receipt Date: 20151112
  Transmission Date: 20160304
  Serious: Yes (Life-Threatening, Hospitalization, Other)
  Sender: FDA-Public Use
  Company Number: FI-ROCHE-1637775

PATIENT
  Age: 71 Year
  Sex: Female

DRUGS (6)
  1. AVASTIN [Suspect]
     Active Substance: BEVACIZUMAB
     Indication: OVARIAN CANCER
     Dosage: TOTALLY 4 CYCLES, LASTEST DOSE PRIOR TO SAE- 28/JUL/2015
     Route: 065
     Dates: start: 20150520, end: 20150728
  2. PACLITAXEL. [Suspect]
     Active Substance: PACLITAXEL
     Dosage: TOTALLY 4 CYCLES?LATEST DOSE PRIOR TO SAE- 28/JUL/2015
     Route: 065
     Dates: end: 20150728
  3. CARBOPLATIN. [Suspect]
     Active Substance: CARBOPLATIN
     Indication: OVARIAN CANCER
     Dosage: TOTALLY 6 CYCLES
     Route: 065
     Dates: start: 201411
  4. THYROXIN [Concomitant]
     Active Substance: LEVOTHYROXINE
     Route: 065
     Dates: start: 2013
  5. PACLITAXEL. [Suspect]
     Active Substance: PACLITAXEL
     Indication: OVARIAN CANCER
     Dosage: TOTALLY 6 CYCLES
     Route: 065
     Dates: start: 201411
  6. CARBOPLATIN. [Suspect]
     Active Substance: CARBOPLATIN
     Dosage: TOTALLY 4 CYCLES?LAEST DOSE PRIOR TO SAE- 28/JUL/2015
     Route: 065
     Dates: end: 20150728

REACTIONS (3)
  - Blood pressure increased [Recovered/Resolved]
  - Arrhythmia [Unknown]
  - Posterior reversible encephalopathy syndrome [Recovered/Resolved]

NARRATIVE: CASE EVENT DATE: 20150728
